FAERS Safety Report 9321401 (Version 1)
Quarter: 2013Q2

REPORT INFORMATION
  Report Type: Spontaneous
  Country: GB (occurrence: None)
  Receive Date: 20130528
  Receipt Date: 20130528
  Transmission Date: 20140414
  Serious: Yes (Other)
  Sender: FDA-Public Use
  Company Number: AUR-APL-2013-04174

PATIENT
  Age: 40 Year
  Sex: Female
  Weight: 99 kg

DRUGS (8)
  1. RIBAVIRIN (RIBAVIRIN) [Suspect]
     Indication: PRODUCT USED FOR UNKNOWN INDICATION
  2. PEGYLATED ALFA-2A INTERFERON [Suspect]
     Indication: PRODUCT USED FOR UNKNOWN INDICATION
  3. VICTRELIS [Suspect]
     Indication: HEPATITIS C
     Route: 048
     Dates: start: 20121227, end: 20130219
  4. AMITRIPTYLINE (AMITRIPTYLINE) [Concomitant]
  5. BUTRANS (BUPRENORPHINE) [Concomitant]
  6. METFORMIN (METFORMIN) [Concomitant]
  7. MIRTAZAPINE (MIRTAZAPINE) [Concomitant]
  8. OMEPRAZOLE (OMEPRAZOLE) [Concomitant]

REACTIONS (4)
  - Feeling abnormal [None]
  - Depressed mood [None]
  - Suicidal ideation [None]
  - Self-injurious ideation [None]
